FAERS Safety Report 7141725-7 (Version None)
Quarter: 2010Q4

REPORT INFORMATION
  Report Type: 
  Country: None (occurrence: None)
  Receive Date: 20101207
  Receipt Date: 20101123
  Transmission Date: 20110411
  Serious: Yes (Hospitalization, Other)
  Sender: FDA-Public Use
  Company Number: PHHY2010BR27621

PATIENT
  Age: 30 Year
  Sex: Female

DRUGS (3)
  1. LEPONEX [Suspect]
     Indication: SCHIZOPHRENIA
     Dosage: 300 MG, TID
     Route: 048
     Dates: start: 20100220, end: 20100425
  2. RISPERIDONE [Concomitant]
     Dosage: 2 MG, QD
  3. DIAZEPAM [Concomitant]
     Dosage: 20 MG, QD

REACTIONS (3)
  - PYREXIA [None]
  - TONSILLITIS BACTERIAL [None]
  - WHITE BLOOD CELL COUNT DECREASED [None]
